FAERS Safety Report 9161906 (Version 1)
Quarter: 2013Q1

REPORT INFORMATION
  Report Type: Spontaneous
  Country: US (occurrence: None)
  Receive Date: 20130222
  Receipt Date: 20130222
  Transmission Date: 20140127
  Serious: Yes (Other)
  Sender: FDA-Public Use
  Company Number: ENTC2013-0056

PATIENT
  Age: 72 Year
  Sex: Male

DRUGS (5)
  1. STALEVO (LEVODOPA, CARBIDOPA, ENTACAPONE) [Suspect]
     Indication: PARKINSON^S DISEASE
     Dosage: 600 MG, 1 IN 4 HR, UNKNOWN
  2. AMITRIPTYLINE (AMITRIPTYLINE) [Concomitant]
  3. ALPRAZOLAM (ALPRAZOLAM) [Concomitant]
  4. CARBIDOPA/LEVODOPA (TABLET) (LEVODOPA) [Concomitant]
  5. AMANTADINE (AMANTADINE) [Concomitant]

REACTIONS (6)
  - On and off phenomenon [None]
  - Treatment failure [None]
  - Dyskinesia [None]
  - Drug dependence [None]
  - Incorrect dose administered [None]
  - Dopamine dysregulation syndrome [None]
